FAERS Safety Report 10744669 (Version 1)
Quarter: 2015Q1

REPORT INFORMATION
  Report Type: Spontaneous
  Country: US (occurrence: None)
  Receive Date: 20150126
  Receipt Date: 20150126
  Transmission Date: 20150721
  Serious: Yes (Hospitalization)
  Sender: FDA-Public Use
  Company Number: None

PATIENT
  Age: 73 Year
  Sex: Male
  Weight: 81.19 kg

DRUGS (2)
  1. ERIBULIN [Suspect]
     Active Substance: ERIBULIN
     Indication: NEOPLASM MALIGNANT
     Dosage: 1.4MG/M2, IV SEE SUMMARY)
     Route: 042
     Dates: start: 20150105, end: 20150120
  2. CETUXIMAB [Suspect]
     Active Substance: CETUXIMAB
     Indication: HEAD AND NECK CANCER
     Dates: start: 20150105, end: 20150120

REACTIONS (4)
  - Chronic obstructive pulmonary disease [None]
  - Sepsis [None]
  - Neutropenia [None]
  - Pneumonia [None]

NARRATIVE: CASE EVENT DATE: 20150116
